FAERS Safety Report 10537120 (Version 2)
Quarter: 2014Q4

REPORT INFORMATION
  Report Type: Spontaneous
  Country: US (occurrence: US)
  Receive Date: 20141022
  Receipt Date: 20141111
  Transmission Date: 20150529
  Serious: Yes (Death)
  Sender: FDA-Public Use
  Company Number: US-ACTELION-A-US2014-106650

PATIENT
  Age: 84 Year
  Sex: Female

DRUGS (9)
  1. OPSUMIT [Suspect]
     Active Substance: MACITENTAN
     Indication: PULMONARY ARTERIAL HYPERTENSION
     Dosage: 10 MG, QD
     Route: 048
     Dates: start: 20140909, end: 20141010
  2. FUROSEMIDE. [Concomitant]
     Active Substance: FUROSEMIDE
  3. METOPROLOL [Concomitant]
     Active Substance: METOPROLOL
  4. WARFARIN [Concomitant]
     Active Substance: WARFARIN
  5. LORATADINE. [Concomitant]
     Active Substance: LORATADINE
  6. FLUNISOLIDE. [Concomitant]
     Active Substance: FLUNISOLIDE
  7. REVATIO [Concomitant]
     Active Substance: SILDENAFIL CITRATE
     Dosage: 80 MG, UNK
  8. ACETAMINOPHEN. [Concomitant]
     Active Substance: ACETAMINOPHEN
  9. POTASSIUM [Concomitant]
     Active Substance: POTASSIUM

REACTIONS (3)
  - Pulmonary arterial hypertension [Fatal]
  - Respiratory failure [Fatal]
  - Disease progression [Fatal]

NARRATIVE: CASE EVENT DATE: 20141010
